FAERS Safety Report 24636501 (Version 1)
Quarter: 2024Q4

REPORT INFORMATION
  Report Type: Spontaneous
  Country: US (occurrence: US)
  Receive Date: 20241119
  Receipt Date: 20241119
  Transmission Date: 20250115
  Serious: Yes (Other)
  Sender: DOMPE FARMACEUTICI
  Company Number: US-FARMAPROD-202411-3863

PATIENT
  Sex: Male
  Weight: 72.5 kg

DRUGS (15)
  1. OXERVATE [Suspect]
     Active Substance: CENEGERMIN-BKBJ
     Indication: Dry eye
     Route: 047
     Dates: start: 20241029
  2. PRAVASTATIN SODIUM [Concomitant]
     Active Substance: PRAVASTATIN SODIUM
  3. LEVETIRACETAM [Concomitant]
     Active Substance: LEVETIRACETAM
  4. LEVETIRACETAM [Concomitant]
     Active Substance: LEVETIRACETAM
  5. VITAMIN D2 [Concomitant]
     Active Substance: ERGOCALCIFEROL
  6. DILANTIN [Concomitant]
     Active Substance: PHENYTOIN
  7. CYMBALTA [Concomitant]
     Active Substance: DULOXETINE HYDROCHLORIDE
  8. METFORMIN HYDROCHLORIDE [Concomitant]
     Active Substance: METFORMIN HYDROCHLORIDE
  9. GRALISE [Concomitant]
     Active Substance: GABAPENTIN
     Dosage: 24 HOURS
  10. CREON [Concomitant]
     Active Substance: PANCRELIPASE AMYLASE\PANCRELIPASE LIPASE\PANCRELIPASE PROTEASE
     Dosage: 36K-114K
  11. OMEGA-3-ACID ETHYL ESTERS [Concomitant]
     Active Substance: OMEGA-3-ACID ETHYL ESTERS
  12. ASPIRIN [Concomitant]
     Active Substance: ASPIRIN
  13. TAMSULOSIN HYDROCHLORIDE [Concomitant]
     Active Substance: TAMSULOSIN HYDROCHLORIDE
  14. LIDOCAINE [Concomitant]
     Active Substance: LIDOCAINE
  15. DICLOFENAC SODIUM [Concomitant]
     Active Substance: DICLOFENAC SODIUM

REACTIONS (7)
  - Cataract operation [Unknown]
  - Dry eye [Unknown]
  - Eye pain [Unknown]
  - Ocular discomfort [Unknown]
  - Sleep disorder [Unknown]
  - Skin exfoliation [Unknown]
  - Off label use [Unknown]
